FAERS Safety Report 9856815 (Version 2)
Quarter: 2014Q1

REPORT INFORMATION
  Report Type: Spontaneous
  Country: US (occurrence: US)
  Receive Date: 20140130
  Receipt Date: 20140211
  Transmission Date: 20141002
  Serious: Yes (Death, Hospitalization)
  Sender: FDA-Public Use
  Company Number: US-B.I. PHARMACEUTICALS,INC./RIDGEFIELD-2014-BI-03986BP

PATIENT
  Sex: Female

DRUGS (12)
  1. SPIRIVA [Suspect]
     Indication: CHRONIC OBSTRUCTIVE PULMONARY DISEASE
     Dosage: 18 MCG
     Route: 055
  2. HYDROCORTISONE [Concomitant]
  3. ZANTAC [Concomitant]
  4. ZOFRAN [Concomitant]
  5. CYMBALTA [Concomitant]
  6. DULERA [Concomitant]
  7. FENTANYL PATCH [Concomitant]
  8. DUONEB NEBULIZER [Concomitant]
  9. PULMICORT NEBUAMP [Concomitant]
  10. MACROBID [Concomitant]
  11. TYLENOL [Concomitant]
  12. OXYGEN [Concomitant]

REACTIONS (1)
  - Chronic obstructive pulmonary disease [Fatal]
